FAERS Safety Report 4739869-X (Version None)
Quarter: 2005Q3

REPORT INFORMATION
  Report Type: 
  Country: None (occurrence: None)
  Receive Date: 20050805
  Receipt Date: 20050720
  Transmission Date: 20060218
  Serious: Yes (Hospitalization)
  Sender: FDA-Public Use
  Company Number: DSA_26783-2005

PATIENT
  Age: 71 Year
  Sex: Male
  Weight: 63.5036 kg

DRUGS (7)
  1. DILTIAZEM HCL [Suspect]
     Dosage: 120 MG
     Dates: start: 20050601, end: 20050701
  2. ALBUTEROL [Concomitant]
  3. ADVAIR DISKUS 100/50 [Concomitant]
  4. NAPROXEN [Concomitant]
  5. FOSAMAX [Concomitant]
  6. ZANTAC [Concomitant]
  7. PLAQUINOL TAB [Concomitant]

REACTIONS (1)
  - STEVENS-JOHNSON SYNDROME [None]
